FAERS Safety Report 8276373-9 (Version None)
Quarter: 2012Q2

REPORT INFORMATION
  Report Type: 
  Country: None (occurrence: None)
  Receive Date: 20120412
  Receipt Date: 20120403
  Transmission Date: 20120825
  Serious: Yes (Hospitalization)
  Sender: FDA-Public Use
  Company Number: AU-JNJFOC-20110510660

PATIENT
  Sex: Male
  Weight: 81.3 kg

DRUGS (17)
  1. ABIRATERONE ACETATE [Suspect]
     Indication: PROSTATE CANCER METASTATIC
     Route: 048
     Dates: start: 20110513, end: 20110520
  2. NEXIUM [Concomitant]
     Indication: GASTROINTESTINAL DISORDER THERAPY
     Route: 065
     Dates: start: 20100928
  3. SODIUM CHLORIDE [Concomitant]
     Indication: ANAEMIA
     Route: 065
     Dates: start: 20110609, end: 20110609
  4. BUPRENORPHINE [Suspect]
     Indication: PAIN
     Route: 062
     Dates: start: 20110517
  5. ABIRATERONE ACETATE [Suspect]
     Route: 048
     Dates: start: 20110524, end: 20110524
  6. PREDNISONE TAB [Suspect]
     Indication: PROSTATE CANCER METASTATIC
     Route: 048
     Dates: start: 20110521
  7. NEURONTIN [Concomitant]
     Indication: PAIN
     Route: 065
     Dates: start: 20100101
  8. BUPRENORPHINE [Suspect]
     Route: 062
     Dates: start: 20110616
  9. CALCIUM CARBONATE [Concomitant]
     Indication: MINERAL SUPPLEMENTATION
     Route: 065
     Dates: start: 20100101
  10. LEUPROLIDE ACETATE [Concomitant]
     Indication: HORMONE THERAPY
     Route: 065
     Dates: start: 20071001
  11. BUPRENORPHINE [Suspect]
     Route: 062
  12. ABIRATERONE ACETATE [Suspect]
     Route: 048
     Dates: start: 20110618
  13. FUROSEMIDE [Concomitant]
     Indication: ANAEMIA
     Route: 065
     Dates: start: 20110609, end: 20110610
  14. ABIRATERONE ACETATE [Suspect]
     Route: 048
     Dates: start: 20110604, end: 20110606
  15. PREDNISONE TAB [Suspect]
     Route: 048
     Dates: start: 20110513, end: 20110520
  16. RED BLOOD CELLS [Concomitant]
     Indication: ANAEMIA
     Route: 065
     Dates: start: 20110609, end: 20110610
  17. MORPHINE [Concomitant]
     Indication: PAIN
     Route: 065
     Dates: start: 20110609, end: 20110609

REACTIONS (6)
  - NERVE ROOT COMPRESSION [None]
  - VOMITING [None]
  - VIRAL UPPER RESPIRATORY TRACT INFECTION [None]
  - NAUSEA [None]
  - ANAEMIA [None]
  - DEHYDRATION [None]
